FAERS Safety Report 17499875 (Version 24)
Quarter: 2025Q1

REPORT INFORMATION
  Report Type: Report from Study
  Country: US (occurrence: US)
  Receive Date: 20200305
  Receipt Date: 20250325
  Transmission Date: 20250408
  Serious: Yes (Hospitalization, Other)
  Sender: TAKEDA
  Company Number: US-KAMADA LIMITED-2020US001233

PATIENT
  Age: 59 Year
  Sex: Female
  Weight: 78 kg

DRUGS (45)
  1. GLASSIA [Suspect]
     Active Substance: .ALPHA.1-PROTEINASE INHIBITOR HUMAN
     Indication: Alpha-1 antitrypsin deficiency
     Dosage: 60 MILLIGRAM/KILOGRAM, 1/WEEK
     Dates: start: 20131030
  2. GLASSIA [Suspect]
     Active Substance: .ALPHA.1-PROTEINASE INHIBITOR HUMAN
     Indication: Chronic obstructive pulmonary disease
     Dosage: 60 MILLIGRAM/KILOGRAM, 1/WEEK
     Dates: start: 20140210
  3. GLASSIA [Suspect]
     Active Substance: .ALPHA.1-PROTEINASE INHIBITOR HUMAN
     Dosage: 60 MILLIGRAM/KILOGRAM, 1/WEEK
  4. DIPHENHYDRAMINE [Concomitant]
     Active Substance: DIPHENHYDRAMINE
  5. HYDROMORPHONE [Concomitant]
     Active Substance: HYDROMORPHONE
  6. SYMBICORT [Concomitant]
     Active Substance: BUDESONIDE\FORMOTEROL FUMARATE DIHYDRATE
  7. CLARITIN [Concomitant]
     Active Substance: LORATADINE
  8. ALBUTEROL\IPRATROPIUM [Concomitant]
     Active Substance: ALBUTEROL\IPRATROPIUM
  9. IBUPROFEN [Concomitant]
     Active Substance: IBUPROFEN
  10. ACETAMINOPHEN [Concomitant]
     Active Substance: ACETAMINOPHEN
  11. FERROUS SULFATE [Concomitant]
     Active Substance: FERROUS SULFATE
  12. EPINEPHRINE [Concomitant]
     Active Substance: EPINEPHRINE
  13. SODIUM CHLORIDE [Concomitant]
     Active Substance: SODIUM CHLORIDE
  14. BISACODYL [Concomitant]
     Active Substance: BISACODYL
  15. CHOLECALCIFEROL [Concomitant]
     Active Substance: CHOLECALCIFEROL
  16. REMERON [Concomitant]
     Active Substance: MIRTAZAPINE
  17. SYNTHROID [Concomitant]
     Active Substance: LEVOTHYROXINE SODIUM
  18. POTASSIUM CHLORIDE [Concomitant]
     Active Substance: POTASSIUM CHLORIDE
  19. VITAMIN C [Concomitant]
     Active Substance: ASCORBIC ACID
  20. ASPIRIN [Concomitant]
     Active Substance: ASPIRIN
  21. OXYGEN [Concomitant]
     Active Substance: OXYGEN
  22. COMPAZINE [Concomitant]
     Active Substance: PROCHLORPERAZINE MALEATE
  23. COLACE [Concomitant]
     Active Substance: DOCUSATE SODIUM
  24. LIPITOR [Concomitant]
     Active Substance: ATORVASTATIN CALCIUM
  25. CORTEF [Concomitant]
     Active Substance: HYDROCORTISONE
  26. MUCINEX [Concomitant]
     Active Substance: GUAIFENESIN
  27. SEROQUEL [Concomitant]
     Active Substance: QUETIAPINE FUMARATE
  28. CYMBALTA [Concomitant]
     Active Substance: DULOXETINE HYDROCHLORIDE
  29. CALCIUM [Concomitant]
     Active Substance: CALCIUM
  30. PEPCID [Concomitant]
     Active Substance: FAMOTIDINE
  31. TUMS [Concomitant]
     Active Substance: CALCIUM CARBONATE
  32. LORATADINE [Concomitant]
     Active Substance: LORATADINE
  33. LOTRIMIN AF ANTIFUNGAL [Concomitant]
     Active Substance: MICONAZOLE NITRATE
  34. CEFDINIR [Concomitant]
     Active Substance: CEFDINIR
  35. HYDROMORPHONE HCL [Concomitant]
     Active Substance: HYDROMORPHONE HYDROCHLORIDE
  36. DIPHENHYDRAMINE HYDROCHLORIDE [Concomitant]
     Active Substance: DIPHENHYDRAMINE HYDROCHLORIDE
  37. CLONAZEPAM [Concomitant]
     Active Substance: CLONAZEPAM
  38. MONTELUKAST SODIUM [Concomitant]
     Active Substance: MONTELUKAST SODIUM
  39. TOBRAMYCIN [Concomitant]
     Active Substance: TOBRAMYCIN
  40. LASIX [Concomitant]
     Active Substance: FUROSEMIDE
  41. ALBUTEROL SULFATE [Concomitant]
     Active Substance: ALBUTEROL SULFATE
  42. LEVOTHYROXINE [Concomitant]
     Active Substance: LEVOTHYROXINE
  43. ATORVASTATIN CALCIUM [Concomitant]
     Active Substance: ATORVASTATIN CALCIUM
  44. LEVOTHYROXINE SODIUM [Concomitant]
     Active Substance: LEVOTHYROXINE SODIUM
  45. BUDESONIDE\FORMOTEROL FUMARATE [Concomitant]
     Active Substance: BUDESONIDE\FORMOTEROL FUMARATE

REACTIONS (21)
  - Pneumonia [Unknown]
  - Pneumonia bacterial [Unknown]
  - Cellulitis [Unknown]
  - Respiratory syncytial virus infection [Unknown]
  - Lower limb fracture [Unknown]
  - Malaise [Unknown]
  - Multiple allergies [Unknown]
  - Dehydration [Unknown]
  - COVID-19 [Unknown]
  - Nasopharyngitis [Unknown]
  - Dyspnoea exertional [Unknown]
  - Nasal obstruction [Unknown]
  - Illness [Unknown]
  - Insurance issue [Unknown]
  - Product use issue [Unknown]
  - Product use in unapproved indication [Unknown]
  - Poor venous access [Unknown]
  - Sputum abnormal [Unknown]
  - Painful respiration [Unknown]
  - Dizziness [Unknown]
  - Dyspnoea [Unknown]

NARRATIVE: CASE EVENT DATE: 20220925
